FAERS Safety Report 4826745-7 (Version None)
Quarter: 2005Q4

REPORT INFORMATION
  Report Type: 
  Country: None (occurrence: None)
  Receive Date: 20051111
  Receipt Date: 20051111
  Transmission Date: 20060501
  Serious: Yes (Hospitalization)
  Sender: FDA-Public Use
  Company Number: None

PATIENT
  Age: 57 Year
  Sex: Male

DRUGS (5)
  1. SEROQUEL [Suspect]
     Dosage: PO
     Route: 048
  2. SERTRALINE HCL [Concomitant]
  3. VALSARTAN [Concomitant]
  4. LEVOTHYROXINE [Concomitant]
  5. CHLORDIAZEPOXIDE [Concomitant]

REACTIONS (6)
  - ALCOHOL USE [None]
  - HYPOKALAEMIA [None]
  - HYPOTENSION [None]
  - LOSS OF CONSCIOUSNESS [None]
  - RENAL FAILURE ACUTE [None]
  - RHABDOMYOLYSIS [None]
